FAERS Safety Report 22000794 (Version 1)
Quarter: 2023Q1

REPORT INFORMATION
  Report Type: Report from Study
  Country: US (occurrence: US)
  Receive Date: 20230216
  Receipt Date: 20230216
  Transmission Date: 20230417
  Serious: Yes (Death, Other)
  Sender: FDA-Public Use
  Company Number: US-GILEAD-2023-0616948

PATIENT
  Sex: Female

DRUGS (1)
  1. AZTREONAM LYSINE [Suspect]
     Active Substance: AZTREONAM LYSINE
     Indication: Product used for unknown indication
     Dosage: CAYSTON 75 MG, 28 DAYS ON/28 DAYS OFF, QTY OF 84
     Route: 065

REACTIONS (1)
  - Death [Fatal]
